FAERS Safety Report 18373333 (Version 4)
Quarter: 2020Q4

REPORT INFORMATION
  Report Type: Spontaneous
  Country: US (occurrence: US)
  Receive Date: 20201012
  Receipt Date: 20201130
  Transmission Date: 20210114
  Serious: Yes (Other)
  Sender: FDA-Public Use
  Company Number: US-BRISTOL-MYERS SQUIBB COMPANY-BMS-2020-084425

PATIENT
  Age: 50 Year
  Sex: Female

DRUGS (1)
  1. SPRYCEL [Suspect]
     Active Substance: DASATINIB
     Indication: CHRONIC MYELOID LEUKAEMIA
     Dosage: 140 MILLIGRAM, QD
     Route: 048
     Dates: start: 20201001

REACTIONS (6)
  - Paraesthesia [Unknown]
  - Pruritus [Unknown]
  - Skin haemorrhage [Unknown]
  - Rash [Unknown]
  - Burning sensation [Unknown]
  - Contusion [Unknown]

NARRATIVE: CASE EVENT DATE: 20201008
